FAERS Safety Report 8840704 (Version 1)
Quarter: 2012Q4

REPORT INFORMATION
  Report Type: 
  Country: US (occurrence: US)
  Receive Date: 20121015
  Receipt Date: 20121015
  Transmission Date: 20130627
  Serious: Yes (Hospitalization)
  Sender: FDA-Public Use
  Company Number: US-ROCHE-1112152

PATIENT
  Sex: Female

DRUGS (4)
  1. NUTROPIN [Suspect]
     Indication: CYSTIC FIBROSIS
     Route: 065
  2. NUTROPIN [Suspect]
     Indication: FAILURE TO THRIVE
  3. NUTROPIN AQ [Suspect]
     Indication: CYSTIC FIBROSIS
     Route: 065
  4. NUTROPIN AQ [Suspect]
     Indication: FAILURE TO THRIVE

REACTIONS (7)
  - Pneumonia [Unknown]
  - Pyrexia [Unknown]
  - Weight decreased [Unknown]
  - Malaise [Unknown]
  - Pain [Unknown]
  - Sinus congestion [Unknown]
  - Sinus headache [Unknown]
